FAERS Safety Report 9121819 (Version 1)
Quarter: 2012Q4

REPORT INFORMATION
  Report Type: Spontaneous
  Country: US (occurrence: None)
  Receive Date: 20121026
  Receipt Date: 20121026
  Transmission Date: 20130627
  Serious: No
  Sender: FDA-Public Use
  Company Number: 2012US-004323

PATIENT
  Age: 71 Year
  Sex: Female
  Weight: 43.4 kg

DRUGS (4)
  1. OMONTYS (PEGINESATIDE) SOLUTION FOR INJECTION [Suspect]
     Dosage: 3 mg, q 4 weeks, intravenous
     Route: 042
     Dates: start: 20120803, end: 20120803
  2. EPOGEN (EPOETIN ALFA) [Concomitant]
  3. ZEMPLAR (PARICALCITOL) [Concomitant]
  4. HEPARIN SODIUM) [Concomitant]

REACTIONS (5)
  - Nausea [None]
  - Vomiting [None]
  - Hypersensitivity [None]
  - Muscle spasms [None]
  - Pruritus [None]
